FAERS Safety Report 18030365 (Version 1)
Quarter: 2020Q3

REPORT INFORMATION
  Report Type: Spontaneous
  Country: US (occurrence: US)
  Receive Date: 20200715
  Receipt Date: 20200715
  Transmission Date: 20201103
  Serious: No
  Sender: FDA-Public Use
  Company Number: US-OPTINOSE US, INC-2020OPT000421

PATIENT
  Age: 50 Year
  Sex: Male
  Weight: 99.88 kg

DRUGS (8)
  1. XHANCE [Suspect]
     Active Substance: FLUTICASONE PROPIONATE
     Indication: NASAL POLYPS
     Route: 045
     Dates: start: 20200509
  2. LEVOBUNOLOL HCL [Concomitant]
     Active Substance: LEVOBUNOLOL HYDROCHLORIDE
     Indication: GLAUCOMA
     Dosage: LEFT EYE
     Route: 047
     Dates: start: 2012
  3. PREDNISOLONE ACETATE. [Concomitant]
     Active Substance: PREDNISOLONE ACETATE
     Indication: GLAUCOMA
     Dosage: LEFT EYE
     Route: 047
     Dates: start: 2012
  4. ACYCLOVIR. [Concomitant]
     Active Substance: ACYCLOVIR
     Indication: HERPES ZOSTER
     Route: 048
     Dates: start: 2012
  5. MEMANTINE HCL [Concomitant]
     Active Substance: MEMANTINE
     Indication: GLAUCOMA
     Route: 048
     Dates: start: 2012
  6. CLINDAMYCIN PHOSPHATE. [Concomitant]
     Active Substance: CLINDAMYCIN PHOSPHATE
     Indication: PSEUDOFOLLICULITIS
     Dosage: APPLY TO FACE AFTER SHAVING
     Route: 061
     Dates: start: 2018
  7. FINASTERIDE. [Concomitant]
     Active Substance: FINASTERIDE
     Indication: PROSTATOMEGALY
     Route: 048
     Dates: start: 2019
  8. FINASTERIDE. [Concomitant]
     Active Substance: FINASTERIDE
     Route: 048
     Dates: start: 2012

REACTIONS (3)
  - Wound complication [Recovering/Resolving]
  - Wound haemorrhage [Recovered/Resolved]
  - Device breakage [Unknown]

NARRATIVE: CASE EVENT DATE: 20200529
